FAERS Safety Report 4419708-7 (Version None)
Quarter: 2004Q3

REPORT INFORMATION
  Report Type: 
  Country: None (occurrence: None)
  Receive Date: 20040804
  Receipt Date: 20040729
  Transmission Date: 20050211
  Serious: Yes (Other)
  Sender: FDA-Public Use
  Company Number: 2004-07-1644

PATIENT
  Age: 50 Year
  Sex: Male

DRUGS (2)
  1. REBETOL [Suspect]
     Indication: HEPATITIS C
     Dosage: 800 MG ORAL
     Route: 048
     Dates: start: 20040721, end: 20040726
  2. INTRON A [Suspect]
     Indication: HEPATITIS C
     Dosage: 6 MU 6X/W INTRAMUSCULAR
     Route: 030
     Dates: start: 20040721, end: 20040726

REACTIONS (3)
  - FALL [None]
  - HEAD INJURY [None]
  - LOSS OF CONSCIOUSNESS [None]
